FAERS Safety Report 4488585-0 (Version None)
Quarter: 2004Q4

REPORT INFORMATION
  Report Type: 
  Country: None (occurrence: None)
  Receive Date: 20041028
  Receipt Date: 20041028
  Transmission Date: 20050328
  Serious: No
  Sender: FDA-Public Use
  Company Number: None

PATIENT
  Sex: Male
  Weight: 84.369 kg

DRUGS (3)
  1. METOPROLOL TARTRATE [Suspect]
     Indication: ATRIAL FIBRILLATION
     Dosage: 25 MG BID PO
     Route: 048
  2. METOPROLOL TARTRATE [Suspect]
     Indication: HYPERTENSION
     Dosage: 25 MG BID PO
     Route: 048
  3. RANITIDINE [Suspect]
     Indication: PEPTIC ULCER
     Dosage: 150 MG BID PO
     Route: 048

REACTIONS (1)
  - HYPERSENSITIVITY [None]
